FAERS Safety Report 17834942 (Version 1)
Quarter: 2020Q2

REPORT INFORMATION
  Report Type: Spontaneous
  Country: GB (occurrence: GB)
  Receive Date: 20200528
  Receipt Date: 20200528
  Transmission Date: 20200714
  Serious: Yes (Death)
  Sender: FDA-Public Use
  Company Number: GB-TEVA-2020-GB-1240542

PATIENT
  Age: 56 Year
  Sex: Male

DRUGS (8)
  1. RAMIPRIL. [Concomitant]
     Active Substance: RAMIPRIL
  2. FUROSEMIDE. [Concomitant]
     Active Substance: FUROSEMIDE
  3. ONDANSETRON HYDROCHLORIDE. [Concomitant]
     Active Substance: ONDANSETRON HYDROCHLORIDE
  4. ENTRESTO [Concomitant]
     Active Substance: SACUBITRIL\VALSARTAN
  5. BISOPROLOL [Concomitant]
     Active Substance: BISOPROLOL
  6. AMIODARONE [Suspect]
     Active Substance: AMIODARONE
     Indication: VENTRICULAR EXTRASYSTOLES
     Dosage: 200 MILLIGRAM DAILY; DOSE WAS REDUCED TO 100MG DAILY IN THE LAST 2 WEEKS
     Route: 048
     Dates: start: 20190918, end: 20200429
  7. CHLORPHENAMINE [Concomitant]
     Active Substance: CHLORPHENIRAMINE MALEATE
  8. LEVOTHYROXINE SODIUM. [Concomitant]
     Active Substance: LEVOTHYROXINE SODIUM

REACTIONS (8)
  - Cardiac failure [Fatal]
  - Renal impairment [Fatal]
  - Abnormal loss of weight [Fatal]
  - Drug-induced liver injury [Fatal]
  - Jaundice [Fatal]
  - Faeces pale [Fatal]
  - Decreased appetite [Fatal]
  - Chromaturia [Fatal]

NARRATIVE: CASE EVENT DATE: 20190918
